FAERS Safety Report 7778115-X (Version None)
Quarter: 2011Q3

REPORT INFORMATION
  Report Type: 
  Country: None (occurrence: None)
  Receive Date: 20110926
  Receipt Date: 20110915
  Transmission Date: 20111222
  Serious: Yes (Other)
  Sender: FDA-Public Use
  Company Number: JP-ABBOTT-11P-087-0856764-00

PATIENT
  Age: 36 Year
  Sex: Female
  Weight: 55.4 kg

DRUGS (10)
  1. REMIFENTANIL [Concomitant]
     Indication: MAINTENANCE OF ANAESTHESIA
  2. PROPOFOL [Suspect]
     Indication: INDUCTION OF ANAESTHESIA
  3. PHENYLEPHRINE HCL [Concomitant]
     Indication: BLOOD PRESSURE
     Route: 065
  4. HETASTARCH IN SODIUM CHLORIDE [Concomitant]
     Indication: INFUSION
     Route: 065
  5. ALBUMIN (HUMAN) [Suspect]
     Indication: BLOOD PRESSURE MANAGEMENT
  6. DOPAMINE HCL [Suspect]
     Indication: PRODUCT USED FOR UNKNOWN INDICATION
  7. FENTANYL [Concomitant]
     Indication: BLOOD PRESSURE MANAGEMENT
     Route: 065
  8. ROCURONIUM BROMIDE [Concomitant]
     Indication: MUSCLE RELAXANT THERAPY
     Route: 065
  9. CRYSTALIOID SOLUTION [Concomitant]
     Indication: INFUSION
     Route: 065
  10. SEVOFLURANE [Suspect]
     Indication: MAINTENANCE OF ANAESTHESIA
     Route: 055

REACTIONS (4)
  - METABOLIC ACIDOSIS [None]
  - MYOCARDIAL ISCHAEMIA [None]
  - HAEMOGLOBIN DECREASED [None]
  - BLOOD PRESSURE DECREASED [None]
